FAERS Safety Report 9129982 (Version 2)
Quarter: 2013Q1

REPORT INFORMATION
  Report Type: Spontaneous
  Country: US (occurrence: US)
  Receive Date: 20130228
  Receipt Date: 20130313
  Transmission Date: 20140127
  Serious: Yes (Other)
  Sender: FDA-Public Use
  Company Number: CHPA2013US003734

PATIENT
  Age: 89 Year
  Sex: Female

DRUGS (6)
  1. PREVACID 24HR 15MG [Suspect]
     Indication: GASTROOESOPHAGEAL REFLUX DISEASE
     Dosage: 30 MG, QD
     Route: 048
     Dates: start: 201012
  2. PREVACID 24HR 15MG [Suspect]
     Dosage: 15 MG, QD
     Dates: start: 20130309
  3. VITAMIN D [Concomitant]
  4. COUMADIN ^BOOTS^ [Concomitant]
  5. BISOPROLOL [Concomitant]
  6. AMLODIPINE [Concomitant]

REACTIONS (9)
  - Fracture [Recovered/Resolved]
  - Plasma cell myeloma [Not Recovered/Not Resolved]
  - Bone marrow disorder [Not Recovered/Not Resolved]
  - Back pain [Unknown]
  - Anaemia [Unknown]
  - Off label use [Unknown]
  - Drug ineffective for unapproved indication [Unknown]
  - Overdose [Unknown]
  - Incorrect drug administration duration [Unknown]
